FAERS Safety Report 19632498 (Version 1)
Quarter: 2021Q3

REPORT INFORMATION
  Report Type: Spontaneous
  Country: US (occurrence: US)
  Receive Date: 20210728
  Receipt Date: 20210728
  Transmission Date: 20211014
  Serious: No
  Sender: FDA-Public Use
  Company Number: US-ROCHE-2662124

PATIENT
  Age: 47 Year
  Sex: Male

DRUGS (11)
  1. 5?FLUOROURACIL [Concomitant]
     Active Substance: FLUOROURACIL
  2. FLUOROURACIL. [Concomitant]
     Active Substance: FLUOROURACIL
  3. IRINOTECAN HYDROCHLORIDE. [Concomitant]
     Active Substance: IRINOTECAN HYDROCHLORIDE
  4. LONSURF [Concomitant]
     Active Substance: TIPIRACIL HYDROCHLORIDE\TRIFLURIDINE
  5. LEUCOVORIN. [Concomitant]
     Active Substance: LEUCOVORIN
  6. RAMUCIRUMAB [Concomitant]
     Active Substance: RAMUCIRUMAB
  7. OXALIPLATIN. [Concomitant]
     Active Substance: OXALIPLATIN
  8. LEUCOVORIN CALCIUM. [Concomitant]
     Active Substance: LEUCOVORIN CALCIUM
  9. XELODA [Suspect]
     Active Substance: CAPECITABINE
     Indication: OESOPHAGEAL CARCINOMA
     Route: 048
     Dates: start: 20190601
  10. DOCETAXEL. [Concomitant]
     Active Substance: DOCETAXEL
  11. PACLITAXEL. [Concomitant]
     Active Substance: PACLITAXEL

REACTIONS (3)
  - Metastases to liver [Unknown]
  - Metastases to lymph nodes [Unknown]
  - Metastases to lung [Unknown]

NARRATIVE: CASE EVENT DATE: 201909
